FAERS Safety Report 22188507 (Version 1)
Quarter: 2023Q2

REPORT INFORMATION
  Report Type: Other
  Country: TW (occurrence: TW)
  Receive Date: 20230409
  Receipt Date: 20230409
  Transmission Date: 20230722
  Serious: Yes (Hospitalization, Other)
  Sender: FDA-Public Use
  Company Number: TW-DEXPHARM-20230803

PATIENT
  Age: 26 Year
  Sex: Male

DRUGS (1)
  1. DEXAMETHASONE [Suspect]
     Active Substance: DEXAMETHASONE
     Dosage: 5 MG DEXAMETHASONE THROUGH INTRAMUSCULAR INJECTION.
     Route: 050

REACTIONS (1)
  - Familial periodic paralysis [Recovered/Resolved]
